FAERS Safety Report 6678589-1 (Version None)
Quarter: 2010Q2

REPORT INFORMATION
  Report Type: 
  Country: None (occurrence: None)
  Receive Date: 20100412
  Receipt Date: 20100412
  Transmission Date: 20101027
  Serious: Yes (Other)
  Sender: FDA-Public Use
  Company Number: None

PATIENT
  Sex: Female
  Weight: 73.0291 kg

DRUGS (2)
  1. BENTYL [Suspect]
     Indication: IRRITABLE BOWEL SYNDROME
     Dosage: ONCE 1/2 AC AND HS PO
     Route: 048
     Dates: start: 19920101, end: 19960101
  2. LEVBID 0.375MG UCB [Suspect]
     Indication: IRRITABLE BOWEL SYNDROME
     Dosage: ONCE-TWICE TABS Q12 PO
     Route: 048
     Dates: start: 19960101, end: 20000101

REACTIONS (2)
  - DRUG INEFFECTIVE [None]
  - FAECAL INCONTINENCE [None]
